FAERS Safety Report 6943091-6 (Version None)
Quarter: 2010Q3

REPORT INFORMATION
  Report Type: 
  Country: None (occurrence: None)
  Receive Date: 20100826
  Receipt Date: 20100824
  Transmission Date: 20110219
  Serious: Yes (Life-Threatening, Hospitalization)
  Sender: FDA-Public Use
  Company Number: GXKR2009DE02525

PATIENT
  Age: 74 Year
  Sex: Male
  Weight: 125 kg

DRUGS (8)
  1. BISOPROLOL (NGX) [Interacting]
     Indication: HYPERTENSION
     Dosage: 5 MG/DAILY
     Route: 048
     Dates: start: 20050101, end: 20080927
  2. ENALAPRIL MALEATE [Suspect]
     Indication: RENAL FAILURE
     Dosage: 5 MG, 2 IN DAY
     Route: 048
     Dates: start: 20080101, end: 20080926
  3. XIPAMIDE [Concomitant]
  4. SIMVASTATIN [Concomitant]
  5. FUROSEMIDE [Concomitant]
  6. ASPIRIN [Concomitant]
  7. ALLOPURINOL [Concomitant]
  8. ACTRAPHANE HM [Interacting]
     Indication: TYPE 2 DIABETES MELLITUS
     Dosage: 1-0-0-1; SINCE 6-7 WEEKS 60 IU (BEFORE 45 IU), 2 IN DAY
     Route: 058
     Dates: start: 20050101, end: 20080921

REACTIONS (3)
  - CARDIAC ARREST [None]
  - DRUG INTERACTION [None]
  - HYPOGLYCAEMIA [None]
